FAERS Safety Report 20127756 (Version 3)
Quarter: 2022Q4

REPORT INFORMATION
  Report Type: Report from Study
  Country: US (occurrence: US)
  Receive Date: 20211129
  Receipt Date: 20221128
  Transmission Date: 20230113
  Serious: Yes (Hospitalization, Other)
  Sender: FDA-Public Use
  Company Number: US-PFIZER INC-202101500520

PATIENT
  Age: 69 Year
  Sex: Female
  Weight: 120.7 kg

DRUGS (20)
  1. PLACEBO [Suspect]
     Active Substance: UNSPECIFIED INGREDIENT
     Indication: Congestive cardiomyopathy
     Dosage: UNK
     Route: 048
     Dates: start: 20201009, end: 20201009
  2. FUROSEMIDE [Suspect]
     Active Substance: FUROSEMIDE
     Indication: Chronic left ventricular failure
     Dosage: 60 MG, ONCE
     Route: 042
     Dates: start: 20201005, end: 20201005
  3. FUROSEMIDE [Suspect]
     Active Substance: FUROSEMIDE
     Dosage: 80 MG, 2X/DAY (TWICE)
     Route: 042
     Dates: start: 20201008, end: 20201008
  4. FUROSEMIDE [Suspect]
     Active Substance: FUROSEMIDE
     Dosage: 80 MG, 2X/DAY (TWICE)
     Route: 042
     Dates: start: 20201009, end: 20201009
  5. FUROSEMIDE [Suspect]
     Active Substance: FUROSEMIDE
     Dosage: 60 MG, TWICE
     Route: 042
     Dates: start: 20201012, end: 20201012
  6. FUROSEMIDE [Suspect]
     Active Substance: FUROSEMIDE
     Dosage: 60 MG, ONCE
     Route: 042
     Dates: start: 20201013, end: 20201013
  7. AMIODARONE [Concomitant]
     Active Substance: AMIODARONE
     Indication: Ventricular tachycardia
     Dosage: UNK
     Route: 048
     Dates: start: 20200810, end: 20201004
  8. ATORVASTATIN [Concomitant]
     Active Substance: ATORVASTATIN
     Indication: Hyperlipidaemia
     Dosage: UNK
     Route: 048
     Dates: start: 20181031, end: 20201004
  9. AZELAIC ACID [Concomitant]
     Active Substance: AZELAIC ACID
     Indication: Rosacea
     Dosage: UNK
     Route: 061
     Dates: start: 20200813, end: 20201004
  10. BUSPIRONE [Concomitant]
     Active Substance: BUSPIRONE HYDROCHLORIDE
     Indication: Anxiety
     Dosage: UNK
     Route: 048
     Dates: start: 20200812, end: 20201004
  11. LEVOTHYROXINE [Concomitant]
     Active Substance: LEVOTHYROXINE
     Indication: Hypothyroidism
     Dosage: UNK
     Route: 048
     Dates: start: 20200811, end: 20201004
  12. LOSARTAN [Concomitant]
     Active Substance: LOSARTAN
     Indication: Essential hypertension
     Dosage: UNK
     Route: 048
     Dates: start: 20200811, end: 20201004
  13. MAGNESIUM CARBONATE [Concomitant]
     Active Substance: MAGNESIUM CARBONATE
     Indication: Prophylaxis
     Dosage: UNK
     Dates: start: 20200813, end: 20201004
  14. METOPROLOL SUCCINATE [Concomitant]
     Active Substance: METOPROLOL SUCCINATE
     Indication: Cardiac failure congestive
     Dosage: EXTENDED-RELEASE TABLET
     Route: 048
     Dates: start: 20170914, end: 20201004
  15. POTASSIUM CHLORIDE [Concomitant]
     Active Substance: POTASSIUM CHLORIDE
     Indication: Prophylaxis
     Dosage: EXTENDED-RELEASE TABLET
     Route: 048
     Dates: start: 20200813, end: 20201004
  16. WARFARIN [Concomitant]
     Active Substance: WARFARIN
     Indication: Prophylaxis
     Dosage: UNK
     Route: 048
     Dates: start: 20200919, end: 20201004
  17. FOLIC ACID [Concomitant]
     Active Substance: FOLIC ACID
     Indication: Routine health maintenance
     Dosage: UNK
     Route: 048
     Dates: start: 20200813, end: 20201004
  18. METRONIDAZOLE [Concomitant]
     Active Substance: METRONIDAZOLE
     Dosage: UNK
     Route: 061
     Dates: start: 20180607
  19. DICYCLOMINE [Concomitant]
     Active Substance: DICYCLOMINE HYDROCHLORIDE
     Dosage: UNK
     Route: 048
     Dates: start: 20200827, end: 20201004
  20. FUROSEMIDE [Concomitant]
     Active Substance: FUROSEMIDE
     Dosage: UNK
     Route: 048
     Dates: start: 20200904, end: 20201004

REACTIONS (1)
  - Acute kidney injury [Recovered/Resolved]

NARRATIVE: CASE EVENT DATE: 20201014
